FAERS Safety Report 8425610-6 (Version None)
Quarter: 2012Q2

REPORT INFORMATION
  Report Type: 
  Country: None (occurrence: None)
  Receive Date: 20120611
  Receipt Date: 20120601
  Transmission Date: 20120825
  Serious: Yes (Hospitalization)
  Sender: FDA-Public Use
  Company Number: US-UCBSA-058932

PATIENT
  Age: 69 Year
  Sex: Male
  Weight: 70.45 kg

DRUGS (4)
  1. CIMZIA [Suspect]
     Dates: start: 20110628, end: 20111005
  2. CIMZIA [Suspect]
     Indication: CROHN'S DISEASE
     Dates: start: 20111018, end: 20120101
  3. FOLIC ACID [Concomitant]
     Indication: CROHN'S DISEASE
  4. PREDNISONE TAB [Concomitant]
     Indication: CROHN'S DISEASE
     Dates: start: 19670101

REACTIONS (2)
  - DEEP VEIN THROMBOSIS [None]
  - CELLULITIS [None]
